FAERS Safety Report 4313550-3 (Version None)
Quarter: 2004Q1

REPORT INFORMATION
  Report Type: 
  Country: None (occurrence: None)
  Receive Date: 20040304
  Receipt Date: 20040213
  Transmission Date: 20041129
  Serious: Yes (Hospitalization)
  Sender: FDA-Public Use
  Company Number: FR_030602559

PATIENT
  Age: 72 Year
  Sex: Female
  Weight: 45 kg

DRUGS (7)
  1. ZYPREXA [Suspect]
     Indication: DEMENTIA
     Dosage: 15 MG/DAY
     Dates: start: 20030513
  2. LEVOTHYROXINE SODIUM [Concomitant]
  3. ASPEGIC 1000 [Concomitant]
  4. OMEPRAZOLE [Concomitant]
  5. TRANSIPEG (MACROGOL) [Concomitant]
  6. FRAXODI (NADROPARIN CALCIUM) [Concomitant]
  7. PREVISCAN (FLUINDIONE) [Concomitant]

REACTIONS (5)
  - DRUG INTERACTION [None]
  - INTERNATIONAL NORMALISED RATIO DECREASED [None]
  - LEUKOPENIA [None]
  - NEUTROPENIA [None]
  - PHLEBITIS [None]
